FAERS Safety Report 13329228 (Version 3)
Quarter: 2017Q1

REPORT INFORMATION
  Report Type: Report from Study
  Country: US (occurrence: US)
  Receive Date: 20170313
  Receipt Date: 20170328
  Transmission Date: 20170428
  Serious: Yes (Death)
  Sender: FDA-Public Use
  Company Number: US-BIOGEN-2017BI00369079

PATIENT
  Age: 43 Year
  Sex: Male

DRUGS (10)
  1. DETEMIR [Concomitant]
     Indication: DIABETES MELLITUS
     Route: 065
  2. LEXAPRO [Concomitant]
     Active Substance: ESCITALOPRAM OXALATE
     Indication: PRODUCT USED FOR UNKNOWN INDICATION
     Route: 065
  3. TYSABRI [Suspect]
     Active Substance: NATALIZUMAB
     Indication: TUMEFACTIVE MULTIPLE SCLEROSIS
     Route: 042
     Dates: start: 20160429, end: 20170202
  4. OMEPRAZOLE. [Concomitant]
     Active Substance: OMEPRAZOLE
     Indication: PRODUCT USED FOR UNKNOWN INDICATION
     Route: 065
  5. LISPRO [Concomitant]
     Active Substance: INSULIN LISPRO
     Indication: DIABETES MELLITUS
     Route: 065
  6. LISINOPRIL. [Concomitant]
     Active Substance: LISINOPRIL
     Indication: PRODUCT USED FOR UNKNOWN INDICATION
     Route: 065
  7. BACLOFEN. [Concomitant]
     Active Substance: BACLOFEN
     Indication: PRODUCT USED FOR UNKNOWN INDICATION
     Route: 065
  8. PEPTO-BISMOL [Concomitant]
     Active Substance: BISMUTH SUBSALICYLATE
     Indication: PRODUCT USED FOR UNKNOWN INDICATION
     Route: 065
  9. VITAMIN D [Concomitant]
     Active Substance: CHOLECALCIFEROL
     Indication: PRODUCT USED FOR UNKNOWN INDICATION
     Route: 065
  10. ASPIRIN. [Concomitant]
     Active Substance: ASPIRIN
     Indication: PRODUCT USED FOR UNKNOWN INDICATION
     Route: 065

REACTIONS (3)
  - Diabetic ketoacidosis [Fatal]
  - Vomiting [Unknown]
  - Malnutrition [Unknown]

NARRATIVE: CASE EVENT DATE: 2017
